FAERS Safety Report 9186297 (Version 1)
Quarter: 2013Q1

REPORT INFORMATION
  Report Type: Spontaneous
  Country: SE (occurrence: SE)
  Receive Date: 20130325
  Receipt Date: 20130325
  Transmission Date: 20140127
  Serious: Yes (Hospitalization)
  Sender: FDA-Public Use
  Company Number: SE-GLAXOSMITHKLINE-B0877080A

PATIENT
  Sex: Female

DRUGS (3)
  1. NEOTIGASON [Suspect]
     Indication: PUSTULAR PSORIASIS
     Dosage: 10MG PER DAY
     Route: 048
     Dates: start: 20120917, end: 20130105
  2. LOCOBASE [Concomitant]
  3. DERMOVAT [Concomitant]

REACTIONS (4)
  - Intracranial pressure increased [Recovering/Resolving]
  - Confusional state [Recovering/Resolving]
  - Dizziness [Recovering/Resolving]
  - Headache [Recovering/Resolving]
